FAERS Safety Report 4443557-7 (Version None)
Quarter: 2004Q3

REPORT INFORMATION
  Report Type: 
  Country: None (occurrence: None)
  Receive Date: 20040901
  Receipt Date: 20040817
  Transmission Date: 20050211
  Serious: Yes (Hospitalization)
  Sender: FDA-Public Use
  Company Number: B0342927A

PATIENT
  Age: 70 Year
  Sex: Male

DRUGS (5)
  1. CHLORAMBUCIL (CHLORAMBUCIL)  (GENERIC) [Suspect]
     Dates: start: 20020403
  2. METHYLPREDNISOLONE [Concomitant]
  3. FRUSEMIDE [Concomitant]
  4. DIGOXIN [Concomitant]
  5. SINTROM [Concomitant]

REACTIONS (7)
  - CARDIAC MURMUR [None]
  - CRYPTOGENIC ORGANIZING PNEUMONIA [None]
  - HEART RATE IRREGULAR [None]
  - HEPATOMEGALY [None]
  - OEDEMA PERIPHERAL [None]
  - PITTING OEDEMA [None]
  - PLATELET COUNT DECREASED [None]
